FAERS Safety Report 24393181 (Version 1)
Quarter: 2024Q4

REPORT INFORMATION
  Report Type: Spontaneous
  Country: JP (occurrence: JP)
  Receive Date: 20241003
  Receipt Date: 20241003
  Transmission Date: 20250115
  Serious: Yes (Death, Hospitalization)
  Sender: PFIZER
  Company Number: JP-EMA-20170324-rpatevhp-135058488

PATIENT
  Age: 84 Year
  Sex: Male
  Weight: 50 kg

DRUGS (6)
  1. UNASYN [Suspect]
     Active Substance: AMPICILLIN SODIUM\SULBACTAM SODIUM
     Indication: Pneumonia aspiration
     Dosage: 3 G, DAILY
     Route: 042
     Dates: start: 19980805, end: 19980811
  2. UNASYN [Suspect]
     Active Substance: AMPICILLIN SODIUM\SULBACTAM SODIUM
     Indication: Staphylococcal infection
  3. STREPTOMYCIN [Concomitant]
     Active Substance: STREPTOMYCIN SULFATE
     Dosage: UNK
     Route: 030
     Dates: start: 19980522, end: 19980824
  4. TARGOCID [Concomitant]
     Active Substance: TEICOPLANIN
     Indication: Pneumonia staphylococcal
     Dosage: 300 MG
     Route: 042
     Dates: start: 19980727, end: 19980728
  5. TARGOCID [Concomitant]
     Active Substance: TEICOPLANIN
     Dosage: 400 MG, DAILY
     Route: 042
     Dates: start: 19980727, end: 19980811
  6. ISONIAZID [Concomitant]
     Active Substance: ISONIAZID
     Dosage: UNK
     Route: 042
     Dates: start: 19980522, end: 19980824

REACTIONS (20)
  - Pneumonia [Fatal]
  - Eosinophil count increased [Fatal]
  - Aplastic anaemia [Unknown]
  - Haematuria [Recovered/Resolved]
  - Haemoptysis [Recovered/Resolved]
  - White blood cell count increased [Unknown]
  - Laboratory test abnormal [Unknown]
  - Lymphocyte count increased [Unknown]
  - Blood bilirubin increased [Unknown]
  - Thrombocytopenia [Unknown]
  - Lymphocyte count decreased [Unknown]
  - C-reactive protein increased [Unknown]
  - Blood urea increased [Unknown]
  - Heart rate increased [Unknown]
  - Blood alkaline phosphatase increased [Unknown]
  - Blood bicarbonate increased [Unknown]
  - Erythropenia [Unknown]
  - Blood potassium decreased [Unknown]
  - Agranulocytosis [Unknown]
  - Pancytopenia [Unknown]

NARRATIVE: CASE EVENT DATE: 19980810
